FAERS Safety Report 16453381 (Version 2)
Quarter: 2019Q3

REPORT INFORMATION
  Report Type: Spontaneous
  Country: US (occurrence: US)
  Receive Date: 20190619
  Receipt Date: 20190816
  Transmission Date: 20191004
  Serious: Yes (Hospitalization, Other)
  Sender: FDA-Public Use
  Company Number: US-SA-2019SA162935

PATIENT
  Sex: Male
  Weight: 66 kg

DRUGS (13)
  1. SODIUM CHLORIDE. [Concomitant]
     Active Substance: SODIUM CHLORIDE
     Dosage: 0.9 %
     Route: 042
     Dates: start: 20180730
  2. EPINEPHRINE. [Concomitant]
     Active Substance: EPINEPHRINE
     Dosage: 0.15 MG, PRN
     Dates: start: 20180730
  3. DIPHENHYDRAMINE. [Concomitant]
     Active Substance: DIPHENHYDRAMINE
     Dosage: 12.5 MG
     Route: 042
     Dates: start: 20180730
  4. NORMAL SALINE [Concomitant]
     Active Substance: SODIUM CHLORIDE
     Dosage: 0.9 %
     Route: 042
     Dates: start: 20180730
  5. ONDANSETRON [Concomitant]
     Active Substance: ONDANSETRON
     Indication: PREMEDICATION
     Dosage: 4 MG
     Route: 042
     Dates: start: 20180730
  6. ALDURAZYME [Suspect]
     Active Substance: LARONIDASE
     Dosage: 17.4 MG, QW
     Route: 041
     Dates: start: 20160601
  7. SOLU-CORTEF [Concomitant]
     Active Substance: HYDROCORTISONE SODIUM SUCCINATE
     Dosage: 40 UNK, PRN
     Route: 042
     Dates: start: 20180730
  8. INCRELEX [Concomitant]
     Active Substance: MECASERMIN
     Dosage: 40MG,UD
     Dates: start: 20161005
  9. HEPARIN [Concomitant]
     Active Substance: HEPARIN SODIUM
     Dosage: 100 UNITS UD
     Dates: start: 20180730
  10. PREVACID [Concomitant]
     Active Substance: LANSOPRAZOLE
     Dosage: 1 TAB
     Route: 048
     Dates: start: 20190115
  11. ONDANSETRON [Concomitant]
     Active Substance: ONDANSETRON
     Dosage: 1DOSE
     Route: 042
     Dates: start: 20161005
  12. ALDURAZYME [Suspect]
     Active Substance: LARONIDASE
     Indication: MUCOPOLYSACCHARIDOSIS
     Dosage: 12.5 MG, QW
     Route: 041
     Dates: start: 201906
  13. ACETAMINOPHEN. [Concomitant]
     Active Substance: ACETAMINOPHEN
     Indication: PREMEDICATION
     Dosage: 200 MG
     Route: 048
     Dates: start: 20190115

REACTIONS (3)
  - Diarrhoea [Not Recovered/Not Resolved]
  - Oesophagogastric fundoplasty [Unknown]
  - Vomiting [Not Recovered/Not Resolved]

NARRATIVE: CASE EVENT DATE: 20190608
